FAERS Safety Report 12494123 (Version 11)
Quarter: 2016Q3

REPORT INFORMATION
  Report Type: Report from Study
  Country: HU (occurrence: HU)
  Receive Date: 20160623
  Receipt Date: 20160924
  Transmission Date: 20161109
  Serious: Yes (Death, Life-Threatening, Hospitalization)
  Sender: FDA-Public Use
  Company Number: PHHO2016HU008862

PATIENT
  Age: 66 Year
  Sex: Male
  Weight: 78 kg

DRUGS (6)
  1. ENTRESTO [Suspect]
     Active Substance: SACUBITRIL\VALSARTAN
     Indication: CARDIAC FAILURE CHRONIC
     Dosage: 50 MG, BID
     Route: 048
     Dates: start: 20160111, end: 20160620
  2. CORDARONE [Suspect]
     Active Substance: AMIODARONE HYDROCHLORIDE
     Indication: VENTRICULAR TACHYCARDIA
     Dosage: 200 MG, QD
     Route: 065
     Dates: start: 20160421
  3. METOPROLOL TARTRATE. [Suspect]
     Active Substance: METOPROLOL TARTRATE
     Indication: LEFT VENTRICULAR FAILURE
     Dosage: 50 MG, BID
     Route: 065
     Dates: start: 20160609, end: 20160620
  4. FURON [Suspect]
     Active Substance: FUROSEMIDE
     Indication: LEFT VENTRICULAR FAILURE
     Dosage: 20 MG, QD
     Route: 065
     Dates: start: 20160609
  5. VEROSPIRON [Suspect]
     Active Substance: SPIRONOLACTONE
     Indication: LEFT VENTRICULAR FAILURE
     Dosage: 25 MG, QD
     Route: 048
     Dates: start: 2008
  6. MONO MACK [Suspect]
     Active Substance: ISOSORBIDE MONONITRATE
     Indication: LEFT VENTRICULAR FAILURE
     Dosage: 50 MG, QD
     Route: 065
     Dates: start: 20160609, end: 20160620

REACTIONS (5)
  - Hypotension [Fatal]
  - General physical health deterioration [Fatal]
  - Sepsis [Fatal]
  - Ventricular tachycardia [Fatal]
  - Shock [Fatal]

NARRATIVE: CASE EVENT DATE: 20160615
